FAERS Safety Report 25870638 (Version 1)
Quarter: 2025Q4

REPORT INFORMATION
  Report Type: Spontaneous
  Country: US (occurrence: US)
  Receive Date: 20251001
  Receipt Date: 20251001
  Transmission Date: 20260118
  Serious: Yes (Death, Other)
  Sender: AMGEN
  Company Number: US-AMGEN-USASP2025190137

PATIENT

DRUGS (1)
  1. INFLIXIMAB [Suspect]
     Active Substance: INFLIXIMAB
     Indication: Immunosuppression
     Dosage: UNK
     Route: 065

REACTIONS (12)
  - Death [Fatal]
  - Cardiovascular disorder [Fatal]
  - Neoplasm malignant [Fatal]
  - Myasthenia gravis [Fatal]
  - Cardiac failure [Fatal]
  - Pneumonia [Unknown]
  - Myocarditis [Unknown]
  - Cardiac arrest [Unknown]
  - Cardiogenic shock [Unknown]
  - Atrioventricular block complete [Unknown]
  - Intensive care [Unknown]
  - Off label use [Unknown]
